FAERS Safety Report 5397943-1 (Version None)
Quarter: 2007Q3

REPORT INFORMATION
  Report Type: 
  Country: None (occurrence: None)
  Receive Date: 20070726
  Receipt Date: 20070719
  Transmission Date: 20080115
  Serious: Yes (Hospitalization)
  Sender: FDA-Public Use
  Company Number: EMADSS2003004370

PATIENT
  Sex: Male

DRUGS (2)
  1. HALOPERIDOL DECANOATE [Suspect]
     Indication: PSYCHOTIC DISORDER
     Route: 030
     Dates: end: 20030501
  2. TERCIAN [Suspect]
     Indication: SCHIZOPHRENIA

REACTIONS (1)
  - COLITIS ISCHAEMIC [None]
